FAERS Safety Report 9789305 (Version 2)
Quarter: 2014Q1

REPORT INFORMATION
  Report Type: Spontaneous
  Country: AU (occurrence: AU)
  Receive Date: 20131231
  Receipt Date: 20140304
  Transmission Date: 20141002
  Serious: Yes (Other)
  Sender: FDA-Public Use
  Company Number: AU-BAXTER-2013BAX052596

PATIENT
  Sex: Female

DRUGS (2)
  1. ARTISS FIBRIN SEALAND VH S/D 4IU (FROZEN) SOLUTION FOR SEALANT SYRINGE [Suspect]
     Indication: PTERYGIUM OPERATION
     Route: 065
     Dates: start: 20131217
  2. ARTISS FIBRIN SEALAND VH S/D 4IU (FROZEN) SOLUTION FOR SEALANT SYRINGE [Suspect]
     Indication: OFF LABEL USE

REACTIONS (1)
  - Graft complication [Unknown]
